FAERS Safety Report 9298949 (Version 1)
Quarter: 2013Q2

REPORT INFORMATION
  Report Type: Spontaneous
  Country: US (occurrence: US)
  Receive Date: 20130520
  Receipt Date: 20130520
  Transmission Date: 20140414
  Serious: No
  Sender: FDA-Public Use
  Company Number: US-SANOFI-AVENTIS-2012SA093283

PATIENT
  Age: 38 Year
  Sex: Male

DRUGS (3)
  1. SOLOSTAR [Suspect]
     Indication: TYPE 1 DIABETES MELLITUS
  2. APIDRA SOLOSTAR [Suspect]
     Indication: TYPE 1 DIABETES MELLITUS
     Dosage: THE PATIENT STARTED INSULIN GLULISINE (APIDRA SOLOSTAR) OVER 2 YEARS.
     Route: 058
  3. APIDRA [Suspect]
     Indication: TYPE 1 DIABETES MELLITUS
     Route: 058
     Dates: start: 2011

REACTIONS (3)
  - Blood glucose increased [Unknown]
  - Euphoric mood [Unknown]
  - Pollakiuria [Unknown]
